FAERS Safety Report 7056054-X (Version None)
Quarter: 2010Q4

REPORT INFORMATION
  Report Type: 
  Country: None (occurrence: None)
  Receive Date: 20101021
  Receipt Date: 20101013
  Transmission Date: 20110411
  Serious: Yes (Hospitalization)
  Sender: FDA-Public Use
  Company Number: B0680384A

PATIENT
  Sex: Male

DRUGS (1)
  1. DUODART [Suspect]
     Route: 048
     Dates: start: 20100901

REACTIONS (1)
  - HYPOAESTHESIA [None]
